FAERS Safety Report 8434864-1 (Version None)
Quarter: 2012Q2

REPORT INFORMATION
  Report Type: 
  Country: None (occurrence: None)
  Receive Date: 20120614
  Receipt Date: 20120604
  Transmission Date: 20120825
  Serious: Yes (Hospitalization)
  Sender: FDA-Public Use
  Company Number: US-BAYER-2011-032480

PATIENT
  Age: 45 Year
  Sex: Female
  Weight: 102.4 kg

DRUGS (7)
  1. NEXIUM [Concomitant]
     Dosage: 40 MG, UNK
  2. DROSPIRENONE AND ETHINYL ESTRADIOL [Suspect]
     Dosage: UNK
     Dates: start: 20090330, end: 20090427
  3. IRON [Concomitant]
     Dosage: UNK MG, UNK
  4. MEDROXYPROGESTERONE [Concomitant]
     Dosage: 10 MG, UNK
     Route: 048
     Dates: start: 20090306
  5. LEVOTHYROXINE SODIUM [Concomitant]
     Dosage: 0.125 MG, UNK
  6. YASMIN [Suspect]
     Indication: VAGINAL HAEMORRHAGE
     Dosage: UNK
  7. MOTRIN [Concomitant]
     Dosage: 600 MG, QD

REACTIONS (5)
  - INJURY [None]
  - EMOTIONAL DISTRESS [None]
  - ANXIETY [None]
  - DEEP VEIN THROMBOSIS [None]
  - DEPRESSION [None]
